FAERS Safety Report 13133972 (Version 1)
Quarter: 2017Q1

REPORT INFORMATION
  Report Type: Spontaneous
  Country: US (occurrence: US)
  Receive Date: 20170120
  Receipt Date: 20170120
  Transmission Date: 20170428
  Serious: No
  Sender: FDA-Public Use
  Company Number: US-BAYER-2017-011532

PATIENT
  Age: 57 Year
  Sex: Male
  Weight: 104 kg

DRUGS (8)
  1. MIRALAX [Suspect]
     Active Substance: POLYETHYLENE GLYCOL 3350
     Indication: GASTROINTESTINAL DISORDER
     Route: 048
  2. LOTREL [Concomitant]
     Active Substance: AMLODIPINE BESYLATE\BENAZEPRIL HYDROCHLORIDE
  3. TEGRETOL [Concomitant]
     Active Substance: CARBAMAZEPINE
  4. SIMVASTATIN. [Concomitant]
     Active Substance: SIMVASTATIN
  5. METFORMIN [Concomitant]
     Active Substance: METFORMIN HYDROCHLORIDE
  6. SULINDAC. [Concomitant]
     Active Substance: SULINDAC
  7. PHILLIP^S COLON HEALTH [Concomitant]
     Indication: GASTROINTESTINAL DISORDER
     Route: 048
  8. KEPPRA [Concomitant]
     Active Substance: LEVETIRACETAM

REACTIONS (2)
  - Product use issue [Unknown]
  - Off label use [Unknown]
